FAERS Safety Report 12953721 (Version 1)
Quarter: 2016Q4

REPORT INFORMATION
  Report Type: Spontaneous
  Country: US (occurrence: US)
  Receive Date: 20161118
  Receipt Date: 20161118
  Transmission Date: 20170207
  Serious: No
  Sender: FDA-Public Use
  Company Number: US-AMGEN-USASP2016158708

PATIENT
  Age: 59 Year
  Sex: Female

DRUGS (2)
  1. ENBREL [Suspect]
     Active Substance: ETANERCEPT
     Indication: RHEUMATOID ARTHRITIS
     Dosage: 50 MG, QWK
     Route: 065
     Dates: start: 2015, end: 2016
  2. ENBREL [Suspect]
     Active Substance: ETANERCEPT
     Dosage: 50 MG, EVERY FIVE DAYS
     Route: 065
     Dates: start: 2016

REACTIONS (9)
  - Anxiety [Unknown]
  - Nervousness [Unknown]
  - Off label use [Unknown]
  - Neck pain [Unknown]
  - Irritability [Unknown]
  - Restlessness [Unknown]
  - Headache [Not Recovered/Not Resolved]
  - Drug effect incomplete [Unknown]
  - Crying [Unknown]

NARRATIVE: CASE EVENT DATE: 2016
